FAERS Safety Report 5838976-8 (Version None)
Quarter: 2008Q3

REPORT INFORMATION
  Report Type: 
  Country: None (occurrence: None)
  Receive Date: 20080808
  Receipt Date: 20080807
  Transmission Date: 20090109
  Serious: Yes (Life-Threatening, Hospitalization)
  Sender: FDA-Public Use
  Company Number: JP-BOEHRINGER INGELHEIM GMBH, GERMANY-2008-BP-05539NB

PATIENT
  Age: 76 Year
  Sex: Male

DRUGS (9)
  1. BI-SIFROL TABLETS [Suspect]
     Indication: PARKINSON'S DISEASE
     Route: 048
     Dates: start: 20080321, end: 20080330
  2. MUCODYNE [Concomitant]
     Indication: GASTRIC ULCER
     Route: 048
     Dates: start: 20080131
  3. EXCELASE [Concomitant]
     Indication: GASTRIC ULCER
     Route: 048
     Dates: start: 20010507, end: 20080405
  4. SELBEX [Concomitant]
     Indication: GASTRIC ULCER
     Route: 048
     Dates: start: 20031120, end: 20080405
  5. LANSOPRAZOLE [Concomitant]
     Indication: GASTRIC ULCER
     Route: 048
     Dates: start: 20070531, end: 20080405
  6. MAGMITT [Concomitant]
     Indication: CONSTIPATION
     Route: 048
     Dates: start: 20070607, end: 20080405
  7. CRAVIT [Concomitant]
     Indication: CYSTITIS
     Route: 031
  8. CARBIDOPA AND LEVODOPA [Concomitant]
     Indication: PARKINSON'S DISEASE
     Route: 065
  9. PANVITAN [Concomitant]
     Indication: GASTRIC ULCER
     Route: 048
     Dates: start: 20031001

REACTIONS (1)
  - PNEUMONIA ASPIRATION [None]
